FAERS Safety Report 8518686-9 (Version None)
Quarter: 2012Q3

REPORT INFORMATION
  Report Type: 
  Country: None (occurrence: None)
  Receive Date: 20120718
  Receipt Date: 20110805
  Transmission Date: 20120928
  Serious: No
  Sender: FDA-Public Use
  Company Number: US-BRISTOL-MYERS SQUIBB COMPANY-15810344

PATIENT
  Age: 51 Year
  Sex: Female
  Weight: 104 kg

DRUGS (1)
  1. COUMADIN [Suspect]
     Indication: THROMBOSIS
     Dosage: INCREASED 10MG
     Route: 048
     Dates: end: 20110401

REACTIONS (2)
  - MIGRAINE [None]
  - INTERNATIONAL NORMALISED RATIO DECREASED [None]
